FAERS Safety Report 18610079 (Version 1)
Quarter: 2020Q4

REPORT INFORMATION
  Report Type: Spontaneous
  Country: SE (occurrence: SE)
  Receive Date: 20201214
  Receipt Date: 20201214
  Transmission Date: 20210114
  Serious: Yes (Hospitalization)
  Sender: FDA-Public Use
  Company Number: SE-ACCORD-210535

PATIENT
  Age: 88 Year
  Sex: Female

DRUGS (8)
  1. DERMOVAT [Concomitant]
     Active Substance: CLOBETASOL
     Dosage: STRENGTH:0.05% ,1 APPLICATION IN THE EVENING FOR 2 WEEKS, THEN 2 EVENINGS / WEEK
     Dates: start: 20180312
  2. PANODIL [Concomitant]
     Active Substance: ACETAMINOPHEN
     Dosage: STRENGTH:500 MG
     Dates: start: 20171128
  3. MINIDERM [Concomitant]
     Dosage: STRENGTH: 20% , 1-3 APPLICATIONS IF NEEDED
     Dates: start: 20171128
  4. OXYCODONE/OXYCODONE HYDROCHLORIDE/OXYCODONE PECTINATE/OXYCODONE TEREPHTHALATE [Concomitant]
     Active Substance: OXYCODONE
     Dosage: 1 CAPSULE IF NEEDED, MAXIMUM 4 CAPSULES PER DAY
     Dates: start: 20200604
  5. METHOTREXATE. [Suspect]
     Active Substance: METHOTREXATE
     Indication: ECZEMA
     Dates: end: 201803
  6. ESOMEPRAZOLE/ESOMEPRAZOLE MAGNESIUM/ESOMEPRAZOLE SODIUM [Concomitant]
     Active Substance: ESOMEPRAZOLE
     Dates: start: 20171128
  7. GABAPENTIN 1A FARMA [Concomitant]
     Active Substance: GABAPENTIN
     Dosage: STRENGTH:300MG, 2 CAPSULES 2 TIMES DAILY,
     Dates: start: 20190302
  8. MOVICOL [Concomitant]
     Active Substance: POLYETHYLENE GLYCOL 3350\POTASSIUM CHLORIDE\SODIUM BICARBONATE\SODIUM CHLORIDE
     Dates: start: 20200605

REACTIONS (2)
  - Interstitial lung disease [Unknown]
  - Off label use [Unknown]

NARRATIVE: CASE EVENT DATE: 202010
